FAERS Safety Report 4565052-7 (Version None)
Quarter: 2005Q1

REPORT INFORMATION
  Report Type: 
  Country: None (occurrence: None)
  Receive Date: 20050131
  Receipt Date: 20040629
  Transmission Date: 20050727
  Serious: Yes (Other)
  Sender: FDA-Public Use
  Company Number: US-SOLVAY-00204002164

PATIENT
  Sex: Female
  Weight: 67.5 kg

DRUGS (18)
  1. LEVOXYL [Concomitant]
     Indication: HYPOTHYROIDISM
     Dosage: DAILY DOSE: 125 MICROGRAM(S)
     Route: 048
  2. ESTRATEST [Suspect]
     Indication: HORMONE REPLACEMENT THERAPY
     Dosage: DAILY DOSE:  UNKNOWN
     Route: 048
  3. PRAVACHOL [Concomitant]
     Indication: HYPERLIPIDAEMIA
     Dosage: DAILY DOSE: 40 MILLIGRAM(S)
     Route: 048
  4. PREMPRO [Suspect]
     Indication: HORMONE REPLACEMENT THERAPY
     Dosage: DAILY DOSE: UNK.
     Route: 048
     Dates: start: 19950801, end: 19951001
  5. PROVERA [Suspect]
     Indication: HORMONE REPLACEMENT THERAPY
     Dosage: DAILY DOSE: 2.5 MILLIGRAM(S)
     Route: 048
     Dates: start: 19951001, end: 19951101
  6. PROVERA [Suspect]
     Dosage: DAILY DOSE: 2.5 MILLIGRAM(S)
     Route: 048
     Dates: start: 19960801, end: 19980701
  7. PROVERA [Suspect]
     Dosage: DAILY DOSE: 10 MILLIGRAM(S)
     Route: 048
     Dates: start: 19980101
  8. PREMARIN [Suspect]
     Indication: HORMONE REPLACEMENT THERAPY
     Dosage: DAILY DOSE: 1.25 MILLIGRAM(S)
     Route: 048
     Dates: start: 19951001, end: 19951101
  9. PREMARIN [Suspect]
     Dosage: DAILY DOSE: 1.25 MILLIGRAM(S)
     Route: 048
     Dates: start: 19960801, end: 19980701
  10. PREMARIN [Suspect]
     Dosage: DAILY DOSE: 2.5 MILLIGRAM(S)
     Route: 048
     Dates: start: 19970101
  11. PREMARIN [Suspect]
     Dosage: DAILY DOSE:  UNKNOWN
     Route: 067
     Dates: start: 19960101
  12. PREMPHASE 14/14 [Suspect]
     Indication: HORMONE REPLACEMENT THERAPY
     Dosage: DAILY DOSE: UNK.
     Route: 048
     Dates: start: 19951101, end: 19960801
  13. ESTROGEN (GENERIC) [Suspect]
     Indication: HORMONE REPLACEMENT THERAPY
     Dosage: DAILY DOSE: UNK.
     Route: 048
  14. MPA (GENERIC) [Suspect]
     Indication: HORMONE REPLACEMENT THERAPY
     Dosage: DAILY DOSE: UNK.
     Route: 048
  15. RADIATION THERAPY [Suspect]
     Indication: BREAST CANCER
     Dosage: DAILY DOSE: UNK.
     Route: 065
  16. CYCRIN [Suspect]
     Indication: HORMONE REPLACEMENT THERAPY
     Dosage: DAILY DOSE: 2.5 MILLIGRAM(S)
     Route: 065
  17. CYCRIN [Suspect]
     Dosage: DAILY DOSE: 10 MILLIGRAM(S)
     Route: 065
  18. ESTRACE [Suspect]
     Indication: HORMONE REPLACEMENT THERAPY
     Dosage: DAILY DOSE: 42.5 GRAM(S)
     Route: 067
     Dates: start: 19960101

REACTIONS (4)
  - BREAST CANCER [None]
  - BREAST CANCER METASTATIC [None]
  - BREAST PAIN [None]
  - LIMB DISCOMFORT [None]
